FAERS Safety Report 6395998-9 (Version None)
Quarter: 2009Q4

REPORT INFORMATION
  Report Type: 
  Country: None (occurrence: None)
  Receive Date: 20091009
  Receipt Date: 20090929
  Transmission Date: 20100525
  Serious: Yes (Other)
  Sender: FDA-Public Use
  Company Number: CHPA2009US19541

PATIENT
  Age: 29 Year
  Sex: Female

DRUGS (1)
  1. THERAFLU SEVERE COLD NIGHTTIME (NCH) [Suspect]
     Dosage: AROUND 6 CAPLETS, UNK
     Route: 048
     Dates: start: 20090929, end: 20090929

REACTIONS (2)
  - LETHARGY [None]
  - UNRESPONSIVE TO STIMULI [None]
